FAERS Safety Report 10260059 (Version 1)
Quarter: 2014Q2

REPORT INFORMATION
  Report Type: Spontaneous
  Country: US (occurrence: US)
  Receive Date: 20140625
  Receipt Date: 20140625
  Transmission Date: 20141212
  Serious: No
  Sender: FDA-Public Use
  Company Number: US-009507513-1406USA009500

PATIENT
  Age: 68 Year
  Sex: Female

DRUGS (3)
  1. ZOCOR [Suspect]
     Indication: BLOOD CHOLESTEROL INCREASED
     Dosage: 5 MG, ONCE DAILY
     Route: 048
     Dates: start: 201312, end: 20140119
  2. CARBAMAZEPINE [Concomitant]
  3. LISINOPRIL [Concomitant]

REACTIONS (1)
  - Transient global amnesia [Recovered/Resolved]
